FAERS Safety Report 5653543-7 (Version None)
Quarter: 2008Q1

REPORT INFORMATION
  Report Type: 
  Country: None (occurrence: None)
  Receive Date: 20080131
  Receipt Date: 20071024
  Transmission Date: 20080703
  Serious: No
  Sender: FDA-Public Use
  Company Number: US200710006287

PATIENT
  Age: 65 Year
  Sex: Male
  Weight: 126.1 kg

DRUGS (12)
  1. BYETTA [Suspect]
     Indication: INSULIN-REQUIRING TYPE 2 DIABETES MELLITUS
     Dosage: 5 UG, 2/D, SUBCUTANEOUS; 10 UG, 2/D, SUBCUTANEOUS; 5 UG, 2/D, SUBCUTANEOUS
     Route: 058
     Dates: start: 20070401, end: 20070901
  2. BYETTA [Suspect]
     Indication: INSULIN-REQUIRING TYPE 2 DIABETES MELLITUS
     Dosage: 5 UG, 2/D, SUBCUTANEOUS; 10 UG, 2/D, SUBCUTANEOUS; 5 UG, 2/D, SUBCUTANEOUS
     Route: 058
     Dates: start: 20070901, end: 20071014
  3. BYETTA [Suspect]
     Indication: INSULIN-REQUIRING TYPE 2 DIABETES MELLITUS
     Dosage: 5 UG, 2/D, SUBCUTANEOUS; 10 UG, 2/D, SUBCUTANEOUS; 5 UG, 2/D, SUBCUTANEOUS
     Route: 058
     Dates: start: 20071022
  4. BYETTA [Suspect]
  5. EXENATIDE 5MCG PEN, DISPOSABLE DEVICE [Concomitant]
  6. ACTOS [Concomitant]
  7. LANTUS [Concomitant]
  8. HUMULIN R [Concomitant]
  9. PLAVIX [Concomitant]
  10. LASIX /USA/ (FUROSEMIDE) [Concomitant]
  11. DIOVAN (HYDROCHLOROTHIAZIDE, VALSARTAN) [Concomitant]
  12. COREG [Concomitant]

REACTIONS (4)
  - BLOOD PRESSURE INCREASED [None]
  - CONSTIPATION [None]
  - DIARRHOEA [None]
  - VOMITING [None]
